FAERS Safety Report 9106935 (Version 1)
Quarter: 2013Q1

REPORT INFORMATION
  Report Type: Report from Study
  Country: DE (occurrence: DE)
  Receive Date: 20130221
  Receipt Date: 20130221
  Transmission Date: 20140127
  Serious: Yes (Other)
  Sender: FDA-Public Use
  Company Number: DE-ABBOTT-13P-062-1052806-00

PATIENT
  Age: 62 Year
  Sex: Female
  Weight: 92 kg

DRUGS (4)
  1. HUMIRA [Suspect]
     Indication: RHEUMATOID ARTHRITIS
     Route: 058
     Dates: start: 20110905, end: 20120814
  2. HUMIRA [Suspect]
     Route: 058
     Dates: start: 20130130
  3. METHOTREXATE [Concomitant]
     Indication: RHEUMATOID ARTHRITIS
     Route: 048
  4. GLUCOCORTICOIDS [Concomitant]
     Indication: RHEUMATOID ARTHRITIS

REACTIONS (2)
  - Urinary tract neoplasm [Recovered/Resolved]
  - Blood urine present [Unknown]
